FAERS Safety Report 17313787 (Version 1)
Quarter: 2020Q1

REPORT INFORMATION
  Report Type: Spontaneous
  Country: US (occurrence: US)
  Receive Date: 20200107
  Receipt Date: 20200107
  Transmission Date: 20200409
  Serious: Yes (Other)
  Sender: FDA-Public Use
  Company Number: None

PATIENT
  Age: 84 Year
  Sex: Female
  Weight: 77.11 kg

DRUGS (1)
  1. MYRBETRIQ [Suspect]
     Active Substance: MIRABEGRON
     Indication: HYPERTONIC BLADDER
     Dosage: ?          QUANTITY:1 TAB;?
     Route: 048
     Dates: start: 20191002, end: 20191120

REACTIONS (1)
  - Alopecia [None]

NARRATIVE: CASE EVENT DATE: 201910
